FAERS Safety Report 8529074-3 (Version None)
Quarter: 2012Q3

REPORT INFORMATION
  Report Type: 
  Country: None (occurrence: None)
  Receive Date: 20120716
  Receipt Date: 20120716
  Transmission Date: 20120928
  Serious: No
  Sender: FDA-Public Use
  Company Number: None

PATIENT

DRUGS (1)
  1. TRIAMCINOLONE ACETONIDE [Suspect]

REACTIONS (5)
  - PRURITUS [None]
  - DRY SKIN [None]
  - SKIN EXFOLIATION [None]
  - HAIR GROWTH ABNORMAL [None]
  - SKIN DISCOLOURATION [None]
